FAERS Safety Report 4620783-5 (Version None)
Quarter: 2005Q1

REPORT INFORMATION
  Report Type: 
  Country: None (occurrence: None)
  Receive Date: 20050325
  Receipt Date: 20050309
  Transmission Date: 20050727
  Serious: Yes (Hospitalization, Other)
  Sender: FDA-Public Use
  Company Number: 2005BI003170

PATIENT
  Sex: Male

DRUGS (1)
  1. AVONEX [Suspect]
     Indication: MULTIPLE SCLEROSIS
     Dosage: 30 UG; QW; IM
     Route: 030

REACTIONS (6)
  - BLISTER [None]
  - CONDITION AGGRAVATED [None]
  - LOCALISED INFECTION [None]
  - LYMPHOEDEMA [None]
  - MULTIPLE SCLEROSIS [None]
  - SKIN ULCER [None]
